FAERS Safety Report 17518130 (Version 2)
Quarter: 2020Q1

REPORT INFORMATION
  Report Type: Spontaneous
  Country: US (occurrence: US)
  Receive Date: 20200309
  Receipt Date: 20200318
  Transmission Date: 20200409
  Serious: No
  Sender: FDA-Public Use
  Company Number: US-IGSA-SR10009971

PATIENT
  Age: 16 Year
  Sex: Female
  Weight: 26.3 kg

DRUGS (3)
  1. GAMUNEX-C [Suspect]
     Active Substance: HUMAN IMMUNOGLOBULIN G
     Dosage: 4 G, Q.WK.
     Route: 058
     Dates: start: 2012
  2. GAMUNEX-C [Suspect]
     Active Substance: HUMAN IMMUNOGLOBULIN G
     Indication: SELECTIVE IGG SUBCLASS DEFICIENCY
     Dosage: 4 G, Q.WK.
     Route: 042
     Dates: start: 20200222, end: 20200222
  3. LIDOCAINE W/PRILOCAINE [Concomitant]
     Active Substance: LIDOCAINE\PRILOCAINE
     Dosage: UNK
     Route: 061

REACTIONS (1)
  - Periorbital swelling [Recovered/Resolved]

NARRATIVE: CASE EVENT DATE: 20200222
